FAERS Safety Report 8896393 (Version 1)
Quarter: 2012Q4

REPORT INFORMATION
  Report Type: Spontaneous
  Country: GB (occurrence: None)
  Receive Date: 20121102
  Receipt Date: 20121102
  Transmission Date: 20130627
  Serious: Yes (Other)
  Sender: FDA-Public Use
  Company Number: 1464531

PATIENT
  Sex: Female

DRUGS (5)
  1. PACLITAXEL [Suspect]
     Indication: ENDOMETRIAL CANCER
  2. CARBOPLATIN [Suspect]
  3. LANTUS [Suspect]
     Indication: DIABETES
     Dosage: 14 iu international unit(s)
  4. CORTICOSTEROID NOS [Suspect]
     Indication: ENDOMETRIAL CANCER
  5. THERAPEUTIC RADIOPHARMACEUTICALS [Suspect]
     Indication: ENDOMETRIAL CANCER

REACTIONS (2)
  - Blood glucose decreased [None]
  - Visual acuity reduced [None]
